FAERS Safety Report 11458698 (Version 1)
Quarter: 2015Q3

REPORT INFORMATION
  Report Type: Spontaneous
  Country: US (occurrence: US)
  Receive Date: 20150904
  Receipt Date: 20150904
  Transmission Date: 20151125
  Serious: No
  Sender: FDA-Public Use
  Company Number: US-009507513-1509USA001780

PATIENT
  Age: 5 Year

DRUGS (1)
  1. DULERA [Suspect]
     Active Substance: FORMOTEROL FUMARATE DIHYDRATE\MOMETASONE FUROATE
     Indication: ASTHMA
     Dosage: 200/5 MCG/ 4 PUFFS DAILY
     Route: 055

REACTIONS (3)
  - Product use issue [Unknown]
  - No adverse event [Unknown]
  - Drug administered to patient of inappropriate age [Unknown]
